FAERS Safety Report 4834917-0 (Version None)
Quarter: 2005Q4

REPORT INFORMATION
  Report Type: 
  Country: None (occurrence: None)
  Receive Date: 20051115
  Receipt Date: 20051031
  Transmission Date: 20060501
  Serious: Yes (Other)
  Sender: FDA-Public Use
  Company Number: 219056

PATIENT
  Age: 48 Year
  Sex: Male

DRUGS (4)
  1. AVASTIN [Suspect]
     Indication: PANCREATIC CARCINOMA
     Dosage: SEE IMAGE
     Route: 042
     Dates: start: 20050810, end: 20050901
  2. AVASTIN [Suspect]
     Indication: PANCREATIC CARCINOMA
     Dosage: SEE IMAGE
     Route: 042
     Dates: start: 20050901, end: 20050901
  3. TEGAFUR (TEGAFUR) [Suspect]
     Indication: PANCREATIC CARCINOMA
     Dosage: 45 MG, BID
     Dates: start: 20050810, end: 20050914
  4. OXALIPLATIN (OXALIPLATIN) [Suspect]
     Indication: PANCREATIC CARCINOMA
     Dosage: 234 MG, Q3W, INTRAVENOUS
     Route: 042
     Dates: start: 20050810, end: 20050901

REACTIONS (11)
  - ABDOMINAL ABSCESS [None]
  - CELLULITIS [None]
  - COMPUTERISED TOMOGRAM ABDOMEN ABNORMAL [None]
  - HAEMATOCRIT DECREASED [None]
  - INCISION SITE ABSCESS [None]
  - INTESTINAL FISTULA [None]
  - LOCALISED OEDEMA [None]
  - METASTASES TO LIVER [None]
  - METASTASES TO SOFT TISSUE [None]
  - MYOSITIS [None]
  - RADIATION INJURY [None]
